FAERS Safety Report 5609391-7 (Version None)
Quarter: 2008Q1

REPORT INFORMATION
  Report Type: 
  Country: None (occurrence: None)
  Receive Date: 20080131
  Receipt Date: 20080130
  Transmission Date: 20080703
  Serious: Yes (Other)
  Sender: FDA-Public Use
  Company Number: A0706252A

PATIENT
  Age: 53 Year
  Sex: Male

DRUGS (4)
  1. NICORETTE [Suspect]
     Indication: SMOKING CESSATION THERAPY
     Route: 002
  2. NICOTINE [Suspect]
     Indication: SMOKING CESSATION THERAPY
  3. NICORETTE (MINT) [Concomitant]
     Indication: SMOKING CESSATION THERAPY
     Route: 002
  4. CHEWING GUM [Concomitant]

REACTIONS (8)
  - APPLICATION SITE ERYTHEMA [None]
  - BLOOD GLUCOSE INCREASED [None]
  - BLOOD PRESSURE INCREASED [None]
  - DEPENDENCE [None]
  - PAIN IN JAW [None]
  - PHARMACEUTICAL PRODUCT COMPLAINT [None]
  - THERAPEUTIC RESPONSE UNEXPECTED [None]
  - TOOTHACHE [None]
